FAERS Safety Report 8150733 (Version 2)
Quarter: 2013Q1

REPORT INFORMATION
  Report Type: Spontaneous
  Country: US (occurrence: US)
  Receive Date: 20110922
  Receipt Date: 20130215
  Transmission Date: 20140127
  Serious: Yes (Other)
  Sender: FDA-Public Use
  Company Number: US-ASTRAZENECA-2011SE12692

PATIENT
  Age: 28 Year
  Sex: 0
  Weight: 121.1 kg

DRUGS (6)
  1. SEROQUEL [Suspect]
     Route: 048
     Dates: start: 20060620
  2. LAMICTAL [Concomitant]
     Indication: HYPOMANIA
     Dates: start: 20060620
  3. LAMICTAL [Concomitant]
     Indication: DEPRESSION
     Dates: start: 20060620
  4. LEXAPRO [Concomitant]
     Indication: DEPRESSION
     Dates: start: 20060620
  5. LEXAPRO [Concomitant]
     Indication: ANXIETY
     Dates: start: 20060620
  6. PRILOSEC [Concomitant]
     Indication: ABDOMINAL DISCOMFORT

REACTIONS (5)
  - Pancreatitis [Unknown]
  - Diabetic coma [Unknown]
  - Type 2 diabetes mellitus [Unknown]
  - Diabetes mellitus inadequate control [Unknown]
  - Visual impairment [Unknown]
